FAERS Safety Report 7313843-1 (Version None)
Quarter: 2011Q1

REPORT INFORMATION
  Report Type: 
  Country: None (occurrence: None)
  Receive Date: 20110216
  Receipt Date: 20110216
  Transmission Date: 20110831
  Serious: Yes (Other)
  Sender: FDA-Public Use
  Company Number: None

PATIENT
  Age: 47 Year
  Sex: Female
  Weight: 49.8957 kg

DRUGS (1)
  1. ENCARE [Suspect]
     Indication: CONTRACEPTION
     Dates: start: 20110213, end: 20110214

REACTIONS (2)
  - DYSURIA [None]
  - HAEMORRHAGE [None]
